FAERS Safety Report 6310390-0 (Version None)
Quarter: 2009Q3

REPORT INFORMATION
  Report Type: 
  Country: None (occurrence: None)
  Receive Date: 20090814
  Receipt Date: 20090805
  Transmission Date: 20100115
  Serious: Yes (Hospitalization)
  Sender: FDA-Public Use
  Company Number: US-JNJFOC-20090802083

PATIENT
  Sex: Female
  Weight: 48.5 kg

DRUGS (12)
  1. INFLIXIMAB [Suspect]
     Route: 042
  2. INFLIXIMAB [Suspect]
     Route: 042
  3. INFLIXIMAB [Suspect]
     Indication: CROHN'S DISEASE
     Route: 042
  4. PREDNISONE [Concomitant]
     Indication: INFLAMMATORY BOWEL DISEASE
  5. ANTIBIOTICS [Concomitant]
     Indication: INFLAMMATORY BOWEL DISEASE
  6. METHOTREXATE [Concomitant]
     Indication: INFLAMMATORY BOWEL DISEASE
  7. ASACOL [Concomitant]
  8. FERROUS SULFATE TAB [Concomitant]
  9. CALCIUM WITH VITAMIN D [Concomitant]
  10. FOLATE [Concomitant]
  11. PRILOSEC [Concomitant]
  12. MULTI-VITAMINS [Concomitant]

REACTIONS (1)
  - CROHN'S DISEASE [None]
